FAERS Safety Report 10299011 (Version 3)
Quarter: 2015Q3

REPORT INFORMATION
  Report Type: Spontaneous
  Country: US (occurrence: US)
  Receive Date: 20140711
  Receipt Date: 20150817
  Transmission Date: 20151125
  Serious: No
  Sender: FDA-Public Use
  Company Number: US-GILEAD-2013-0083633

PATIENT
  Age: 59 Year
  Sex: Male

DRUGS (2)
  1. ADCIRCA [Concomitant]
     Active Substance: TADALAFIL
  2. LETAIRIS [Suspect]
     Active Substance: AMBRISENTAN
     Indication: PRODUCT USED FOR UNKNOWN INDICATION
     Dosage: 10 MG, QD
     Route: 048
     Dates: start: 20120618

REACTIONS (9)
  - Fluid retention [Unknown]
  - Oedema [Unknown]
  - Dizziness [Unknown]
  - Anaemia [Unknown]
  - Polyuria [Unknown]
  - Dehydration [Unknown]
  - Dyspnoea [Unknown]
  - Dyspnoea exertional [Unknown]
  - Chest pain [Unknown]

NARRATIVE: CASE EVENT DATE: 201309
